FAERS Safety Report 9700257 (Version 2)
Quarter: 2014Q1

REPORT INFORMATION
  Report Type: Spontaneous
  Country: BR (occurrence: BR)
  Receive Date: 20131121
  Receipt Date: 20140127
  Transmission Date: 20141002
  Serious: Yes (Disabling)
  Sender: FDA-Public Use
  Company Number: BR-ASTRAZENECA-2013SE84744

PATIENT
  Age: 77 Year
  Sex: Female

DRUGS (11)
  1. BRILINTA [Suspect]
     Indication: CEREBROVASCULAR ACCIDENT PROPHYLAXIS
     Route: 048
     Dates: start: 201305
  2. HYDROCHLOROTHIAZIDE [Suspect]
     Indication: CARDIAC DISORDER
     Route: 065
  3. LOSARTAN POTASSIUM [Concomitant]
     Indication: HYPERTENSION
  4. TIBIAL [Concomitant]
     Indication: LABYRINTHITIS
  5. AMLODIPINE BESYLATE [Concomitant]
     Indication: CARDIAC DISORDER
  6. VASTAREL [Concomitant]
     Indication: CARDIAC DISORDER
  7. SIMVASTATIN [Concomitant]
     Indication: CARDIAC DISORDER
  8. AMIODARONE HYDROCHLORIDE [Concomitant]
     Indication: CARDIAC DISORDER
  9. ASA [Concomitant]
     Indication: CARDIAC DISORDER
  10. POTASSIUM [Concomitant]
     Indication: MUSCLE SPASMS
  11. SUSTRATE [Concomitant]
     Indication: CARDIAC DISORDER

REACTIONS (1)
  - Femoral neck fracture [Recovered/Resolved]
